FAERS Safety Report 4394158-0 (Version None)
Quarter: 2004Q3

REPORT INFORMATION
  Report Type: 
  Country: None (occurrence: None)
  Receive Date: 20040706
  Receipt Date: 20040621
  Transmission Date: 20050211
  Serious: Yes (Hospitalization)
  Sender: FDA-Public Use
  Company Number: CERZ-10598

PATIENT
  Age: 9 Year
  Sex: Female
  Weight: 27.5 kg

DRUGS (1)
  1. CEREZYME [Suspect]
     Indication: GAUCHER'S DISEASE
     Dosage: 3500 UNITS QWKS IV
     Route: 042
     Dates: start: 20000301

REACTIONS (1)
  - VIRAL INFECTION [None]
